FAERS Safety Report 6271207-6 (Version None)
Quarter: 2009Q3

REPORT INFORMATION
  Report Type: 
  Country: None (occurrence: None)
  Receive Date: 20090717
  Receipt Date: 20090709
  Transmission Date: 20100115
  Serious: Yes (Hospitalization)
  Sender: FDA-Public Use
  Company Number: US-BIOGENIDEC-2009BI021714

PATIENT
  Age: 29 Year
  Sex: Female

DRUGS (1)
  1. AVONEX [Suspect]
     Indication: MULTIPLE SCLEROSIS
     Route: 030
     Dates: start: 20051218

REACTIONS (6)
  - CHEST PAIN [None]
  - DIZZINESS [None]
  - EAR DISCOMFORT [None]
  - FEELING ABNORMAL [None]
  - PHOTOPSIA [None]
  - SENSATION OF PRESSURE [None]
